FAERS Safety Report 8731401 (Version 1)
Quarter: 2012Q4

REPORT INFORMATION
  Report Type: Report from Study
  Country: DE (occurrence: DE)
  Receive Date: 20120917
  Receipt Date: 20120917
  Transmission Date: 20130627
  Serious: Yes (Death)
  Sender: FDA-Public Use
  Company Number: DE-EISAI INC-E7389-02872-SOL-DE

PATIENT
  Age: 73 Year
  Sex: Female

DRUGS (1)
  1. HALAVEN [Suspect]
     Indication: METASTATIC BREAST CANCER
     Route: 041
     Dates: start: 20110923, end: 20120113

REACTIONS (1)
  - Polyneuropathy [Fatal]
